FAERS Safety Report 16963764 (Version 2)
Quarter: 2019Q4

REPORT INFORMATION
  Report Type: Report from Study
  Country: None (occurrence: US)
  Receive Date: 20191025
  Receipt Date: 20191127
  Transmission Date: 20200122
  Serious: Yes (Hospitalization, Other)
  Sender: FDA-Public Use
  Company Number: US-ABBVIE-19K-163-2974428-00

PATIENT
  Age: 77 Year
  Sex: Female
  Weight: 44.04 kg

DRUGS (1)
  1. CREON [Suspect]
     Active Substance: PANCRELIPASE AMYLASE\PANCRELIPASE LIPASE\PANCRELIPASE PROTEASE
     Indication: PRODUCT USED FOR UNKNOWN INDICATION
     Dosage: TWO WITH EACH MEAL AND ONE WITH SNACKS; ONE PER MEAL; WHENEVER EATING
     Route: 048
     Dates: start: 201607

REACTIONS (4)
  - Hypophagia [Not Recovered/Not Resolved]
  - Intestinal obstruction [Unknown]
  - Neoplasm [Recovering/Resolving]
  - Weight decreased [Not Recovered/Not Resolved]

NARRATIVE: CASE EVENT DATE: 201812
